FAERS Safety Report 12576690 (Version 2)
Quarter: 2016Q4

REPORT INFORMATION
  Report Type: Spontaneous
  Country: US (occurrence: US)
  Receive Date: 20160720
  Receipt Date: 20161019
  Transmission Date: 20170207
  Serious: No
  Sender: FDA-Public Use
  Company Number: US-OTSUKA-2016_009993

PATIENT
  Age: 76 Year
  Sex: Male

DRUGS (10)
  1. REXULTI [Suspect]
     Active Substance: BREXPIPRAZOLE
     Indication: ADJUVANT THERAPY
     Dosage: 0.5 MG, QD
     Route: 048
     Dates: start: 20160502
  2. REXULTI [Suspect]
     Active Substance: BREXPIPRAZOLE
     Indication: MAJOR DEPRESSION
  3. PRISTIQ EXTENDED-RELEASE [Concomitant]
     Active Substance: DESVENLAFAXINE SUCCINATE
     Indication: MAJOR DEPRESSION
     Dosage: 50 MG, QD
     Route: 048
  4. AMOXICILLIN. [Concomitant]
     Active Substance: AMOXICILLIN
     Indication: BRONCHITIS
     Dosage: UNK
     Route: 065
  5. ABILIFY [Concomitant]
     Active Substance: ARIPIPRAZOLE
     Dosage: 15 MG, UNK
     Route: 065
  6. PRISTIQ EXTENDED-RELEASE [Concomitant]
     Active Substance: DESVENLAFAXINE SUCCINATE
     Dosage: 100 MG, UNK
     Route: 065
     Dates: start: 201511
  7. PRISTIQ EXTENDED-RELEASE [Concomitant]
     Active Substance: DESVENLAFAXINE SUCCINATE
     Dosage: 50 MG, UNK
     Route: 065
     Dates: start: 20160502
  8. ABILIFY [Concomitant]
     Active Substance: ARIPIPRAZOLE
     Indication: ADJUVANT THERAPY
     Dosage: 5 MG, QD
     Route: 048
     Dates: start: 201510
  9. ABILIFY [Concomitant]
     Active Substance: ARIPIPRAZOLE
     Indication: MAJOR DEPRESSION
     Dosage: 10 MG, UNK
     Route: 065
  10. WELLBUTRIN [Concomitant]
     Active Substance: BUPROPION HYDROCHLORIDE
     Indication: MAJOR DEPRESSION
     Dosage: 300 MG, QD
     Route: 048

REACTIONS (1)
  - Diarrhoea [Not Recovered/Not Resolved]

NARRATIVE: CASE EVENT DATE: 20160502
